FAERS Safety Report 17057878 (Version 1)
Quarter: 2019Q4

REPORT INFORMATION
  Report Type: Spontaneous
  Country: CA (occurrence: CA)
  Receive Date: 20191121
  Receipt Date: 20191121
  Transmission Date: 20200122
  Serious: Yes (Other)
  Sender: FDA-Public Use
  Company Number: CA-PFIZER INC-2019498520

PATIENT
  Age: 59 Year
  Sex: Female

DRUGS (4)
  1. PACLITAXEL. [Suspect]
     Active Substance: PACLITAXEL
     Indication: BREAST CANCER FEMALE
     Dosage: UNK
     Route: 042
  2. FILGRASTIM [Suspect]
     Active Substance: FILGRASTIM
     Indication: NEUTROPENIA
     Dosage: 80 MG/M2, UNK
  3. CYCLOPHOSPHAMIDE. [Concomitant]
     Active Substance: CYCLOPHOSPHAMIDE
     Indication: BREAST CANCER FEMALE
     Dosage: UNK
  4. ADRIAMYCIN [Concomitant]
     Active Substance: DOXORUBICIN HYDROCHLORIDE
     Indication: BREAST CANCER FEMALE
     Dosage: UNK

REACTIONS (11)
  - Hereditary spastic paraplegia [Not Recovered/Not Resolved]
  - Mobility decreased [Not Recovered/Not Resolved]
  - Colitis [Not Recovered/Not Resolved]
  - Syphilis [Not Recovered/Not Resolved]
  - Burning sensation [Not Recovered/Not Resolved]
  - Chest pain [Not Recovered/Not Resolved]
  - Pain in jaw [Not Recovered/Not Resolved]
  - Blister [Not Recovered/Not Resolved]
  - Dyspepsia [Not Recovered/Not Resolved]
  - Oral herpes [Not Recovered/Not Resolved]
  - Pain in extremity [Not Recovered/Not Resolved]
